FAERS Safety Report 7712738-9 (Version None)
Quarter: 2011Q3

REPORT INFORMATION
  Report Type: 
  Country: None (occurrence: None)
  Receive Date: 20110826
  Receipt Date: 20110817
  Transmission Date: 20111222
  Serious: Yes (Death, Hospitalization)
  Sender: FDA-Public Use
  Company Number: US-GLAXOSMITHKLINE-A0875314A

PATIENT
  Age: 66 Year
  Sex: Male
  Weight: 103.6 kg

DRUGS (1)
  1. AVANDIA [Suspect]
     Indication: TYPE 2 DIABETES MELLITUS
     Route: 048
     Dates: start: 20050101, end: 20071001

REACTIONS (5)
  - CARDIAC FAILURE CONGESTIVE [None]
  - PARALYSIS [None]
  - BRAIN INJURY [None]
  - CARDIOMYOPATHY [None]
  - ISCHAEMIC STROKE [None]
